FAERS Safety Report 6146786-X (Version None)
Quarter: 2009Q2

REPORT INFORMATION
  Report Type: 
  Country: None (occurrence: None)
  Receive Date: 20090403
  Receipt Date: 20090403
  Transmission Date: 20091009
  Serious: No
  Sender: FDA-Public Use
  Company Number: None

PATIENT
  Age: 24 Year
  Sex: Female
  Weight: 56.6996 kg

DRUGS (1)
  1. YAZ [Suspect]
     Indication: CONTRACEPTION
     Dosage: 3 MG/0.02 MG DAILY PO
     Route: 048
     Dates: start: 20090320, end: 20090402

REACTIONS (2)
  - HEADACHE [None]
  - NO THERAPEUTIC RESPONSE [None]
